FAERS Safety Report 4688493-6 (Version None)
Quarter: 2005Q2

REPORT INFORMATION
  Report Type: 
  Country: None (occurrence: None)
  Receive Date: 20050613
  Receipt Date: 20050601
  Transmission Date: 20051028
  Serious: Yes (Hospitalization)
  Sender: FDA-Public Use
  Company Number: JP-JNJFOC-20041002819

PATIENT
  Sex: Male
  Weight: 52 kg

DRUGS (19)
  1. REMICADE [Suspect]
     Route: 042
  2. REMICADE [Suspect]
     Dosage: FOURTH INFUSION
     Route: 042
  3. REMICADE [Suspect]
     Dosage: THIRD INFUSION
     Route: 042
  4. REMICADE [Suspect]
     Route: 042
  5. REMICADE [Suspect]
     Indication: RHEUMATOID ARTHRITIS
     Route: 042
  6. PREDNISOLONE [Suspect]
     Route: 049
  7. PREDNISOLONE [Suspect]
     Indication: RHEUMATOID ARTHRITIS
     Route: 049
  8. RHEUMATREX [Suspect]
     Route: 049
  9. RHEUMATREX [Suspect]
     Route: 049
  10. RHEUMATREX [Suspect]
     Indication: RHEUMATOID ARTHRITIS
     Route: 049
  11. RIMATIL [Concomitant]
     Indication: RHEUMATOID ARTHRITIS
     Route: 049
  12. PENTASA [Concomitant]
     Route: 049
  13. FOLIAMIN [Concomitant]
     Route: 049
  14. TAKEPRON [Concomitant]
     Route: 049
  15. ISCOTIN [Concomitant]
     Route: 049
  16. ADEROXAL [Concomitant]
     Route: 049
  17. HYPEN [Concomitant]
     Indication: RHEUMATOID ARTHRITIS
     Route: 049
  18. INH [Concomitant]
     Indication: TUBERCULOSIS PROPHYLAXIS
  19. BONARON [Concomitant]
     Route: 049

REACTIONS (3)
  - DECREASED APPETITE [None]
  - HERPES ZOSTER [None]
  - SPINAL COMPRESSION FRACTURE [None]
